FAERS Safety Report 14653835 (Version 3)
Quarter: 2022Q3

REPORT INFORMATION
  Report Type: Spontaneous
  Country: US (occurrence: US)
  Receive Date: 20180319
  Receipt Date: 20220719
  Transmission Date: 20221026
  Serious: No
  Sender: FDA-Public Use
  Company Number: US-PFIZER INC-2018110381

PATIENT
  Age: 43 Year
  Sex: Female

DRUGS (1)
  1. XELJANZ [Suspect]
     Active Substance: TOFACITINIB CITRATE
     Dosage: 5 MG, UNK (X60)
     Dates: start: 20170617, end: 20190617

REACTIONS (4)
  - Pain [Unknown]
  - Pain in extremity [Unknown]
  - Arthralgia [Unknown]
  - Product dose omission issue [Unknown]
